FAERS Safety Report 21058079 (Version 1)
Quarter: 2022Q3

REPORT INFORMATION
  Report Type: Spontaneous
  Country: US (occurrence: None)
  Receive Date: 20220708
  Receipt Date: 20220708
  Transmission Date: 20221027
  Serious: Yes (Other)
  Sender: FDA-Public Use
  Company Number: 2022A243784

PATIENT

DRUGS (3)
  1. EVUSHELD [Suspect]
     Active Substance: CILGAVIMAB\TIXAGEVIMAB
     Indication: Immunodeficiency
     Route: 030
  2. RITUXIMAB [Concomitant]
     Active Substance: RITUXIMAB
  3. CELLCEPT [Concomitant]
     Active Substance: MYCOPHENOLATE MOFETIL

REACTIONS (2)
  - Thrombocytopenia [Unknown]
  - Meningitis aseptic [Unknown]

NARRATIVE: CASE EVENT DATE: 20220628
